FAERS Safety Report 6841742-8 (Version None)
Quarter: 2010Q3

REPORT INFORMATION
  Report Type: 
  Country: None (occurrence: None)
  Receive Date: 20100714
  Receipt Date: 20070711
  Transmission Date: 20110219
  Serious: No
  Sender: FDA-Public Use
  Company Number: US-PFIZER INC-2007058860

PATIENT
  Sex: Male

DRUGS (5)
  1. CHANTIX [Suspect]
     Indication: SMOKING CESSATION THERAPY
     Route: 048
     Dates: start: 20070708
  2. PREVACID [Concomitant]
  3. ANTABUSE [Concomitant]
  4. AMBIEN [Concomitant]
  5. PERCOCET [Concomitant]

REACTIONS (2)
  - MALAISE [None]
  - NAUSEA [None]
